FAERS Safety Report 7973623-0 (Version None)
Quarter: 2011Q4

REPORT INFORMATION
  Report Type: 
  Country: None (occurrence: None)
  Receive Date: 20111209
  Receipt Date: 20111128
  Transmission Date: 20120403
  Serious: Yes (Life-Threatening, Hospitalization, Other)
  Sender: FDA-Public Use
  Company Number: 2011P1013471

PATIENT
  Age: 35 Year
  Sex: Female

DRUGS (3)
  1. DIAZEPAM [Suspect]
     Indication: MANIA
     Dosage: 30 MG; QD
  2. OLANZAPINE [Suspect]
     Indication: MANIA
     Dosage: 10 MG; QD
  3. VALPROATE SODIUM [Suspect]
     Indication: MANIA
     Dosage: 1,000 MG;QD, 1,500 MG; QD

REACTIONS (2)
  - DRUG INTERACTION [None]
  - ENCEPHALOPATHY [None]
